FAERS Safety Report 5157785-9 (Version None)
Quarter: 2006Q4

REPORT INFORMATION
  Report Type: 
  Country: None (occurrence: None)
  Receive Date: 20061121
  Receipt Date: 20061121
  Transmission Date: 20070319
  Serious: Yes (Hospitalization)
  Sender: FDA-Public Use
  Company Number: None

PATIENT
  Age: 46 Year
  Sex: Female
  Weight: 49.8957 kg

DRUGS (1)
  1. CABERGOLIINE [Suspect]
     Indication: MENSTRUATION IRREGULAR
     Dosage: 1/2 TAB ONCE PO
     Route: 048
     Dates: start: 20060726, end: 20060726

REACTIONS (2)
  - HAEMOLYTIC ANAEMIA [None]
  - SYNCOPE [None]
